FAERS Safety Report 22769428 (Version 2)
Quarter: 2023Q4

REPORT INFORMATION
  Report Type: Report from Study
  Country: US (occurrence: US)
  Receive Date: 20230801
  Receipt Date: 20231005
  Transmission Date: 20240109
  Serious: Yes (Hospitalization, Other)
  Sender: FDA-Public Use
  Company Number: US-ABBVIE-5180238

PATIENT
  Age: 65 Year
  Sex: Female
  Weight: 61.234 kg

DRUGS (21)
  1. RINVOQ [Suspect]
     Active Substance: UPADACITINIB
     Indication: Product used for unknown indication
     Route: 048
     Dates: end: 202211
  2. RINVOQ [Suspect]
     Active Substance: UPADACITINIB
     Indication: Product used for unknown indication
     Dosage: FIRST ADMIN DATE: 2022
     Route: 048
  3. MINERALS\VITAMINS [Concomitant]
     Active Substance: MINERALS\VITAMINS
     Indication: Product used for unknown indication
     Dosage: TAKE 2 CAPSULES BY MOUTH ONCE DAILY
     Route: 048
  4. PILOCARPINE [Concomitant]
     Active Substance: PILOCARPINE
     Indication: Product used for unknown indication
     Dosage: TAKE 5 MG BY MOUTH THREE TIMES DAILY, FORM STRENGTH: 5 MILLIGRAM
     Route: 048
  5. METHYLPHENIDATE HYDROCHLORIDE [Concomitant]
     Active Substance: METHYLPHENIDATE HYDROCHLORIDE
     Indication: Product used for unknown indication
     Dosage: TAKE  10 MG BY MOUTH THREE TIMES DAILY.
     Route: 048
  6. DOCUSATE\SENNOSIDES [Concomitant]
     Active Substance: DOCUSATE\SENNOSIDES
     Indication: Product used for unknown indication
     Dosage: TAKE 1 TO 2 TABLETS BY MOUTH TWICE DAILY AS NEEDED,  8.6 TO 50 MG TAB
     Route: 048
  7. NALOXONE [Concomitant]
     Active Substance: NALOXONE
     Indication: Product used for unknown indication
     Dosage: INSTILL 1 SPRAY IN NOSE AS NEEDED, 4 MG/ACTUATION SPRAY
     Route: 045
  8. OXYCODONE [Concomitant]
     Active Substance: OXYCODONE
     Indication: Product used for unknown indication
     Dosage: TAKE 1 TO 2 TABLETS BY MOUTH EVERY 4 HOURS AS NEEDED, - FORM STRENGTH: 5 MILLIGRAM
     Route: 048
  9. ACYCLOVIR [Concomitant]
     Active Substance: ACYCLOVIR
     Indication: Product used for unknown indication
     Dosage: 200 MILLIGRAM
     Route: 048
  10. LOSARTAN [Concomitant]
     Active Substance: LOSARTAN
     Indication: Product used for unknown indication
  11. LIDOCAINE [Concomitant]
     Active Substance: LIDOCAINE
     Indication: Product used for unknown indication
     Dosage: APPLY 1 PATCH TO SKIN ONCE DAILY,  5 PERCENT
  12. CALCIUM CARBONATE [Concomitant]
     Active Substance: CALCIUM CARBONATE
     Indication: Product used for unknown indication
     Dosage: FORM STRENGTH: 200 MILLIGRAM
     Route: 048
  13. LEVOTHYROXINE [Concomitant]
     Active Substance: LEVOTHYROXINE
     Indication: Product used for unknown indication
     Route: 048
  14. GABAPENTIN [Concomitant]
     Active Substance: GABAPENTIN
     Indication: Product used for unknown indication
     Dosage: TAKE 300 MG BY MOUTH THREE TIMES DAILY
     Route: 048
  15. LORAZEPAM [Concomitant]
     Active Substance: LORAZEPAM
     Indication: Product used for unknown indication
     Dosage: 1.5 MG BY MOUTH ONCE DAILY
  16. CYCLOBENZAPRINE [Concomitant]
     Active Substance: CYCLOBENZAPRINE
     Indication: Product used for unknown indication
  17. POLYETHYLENE GLYCOL [Concomitant]
     Active Substance: POLYETHYLENE GLYCOL
     Indication: Product used for unknown indication
     Dosage: MIX 1 PACKET AND TAKE ORALLY 3 TIMES DAILY,  17 GRAM POWDER PACKET
  18. ACETAMINOPHEN [Concomitant]
     Active Substance: ACETAMINOPHEN
     Indication: Product used for unknown indication
     Dosage: 1000 MG BY MOUTH AS NEEDED
  19. FLUTICASONE [Concomitant]
     Active Substance: FLUTICASONE
     Indication: Product used for unknown indication
     Route: 045
  20. CARBOXYMETHYLCELLULOSE SODIUM [Concomitant]
     Active Substance: CARBOXYMETHYLCELLULOSE SODIUM
     Indication: Product used for unknown indication
  21. HYDROCHLOROTHIAZIDE [Concomitant]
     Active Substance: HYDROCHLOROTHIAZIDE
     Indication: Product used for unknown indication
     Dosage: FORM STRENGTH: 50 MILLIGRAM
     Route: 048

REACTIONS (32)
  - Spinal fusion surgery [Recovered/Resolved]
  - Dermatitis atopic [Unknown]
  - Neurodermatitis [Unknown]
  - Lumbar spinal stenosis [Unknown]
  - Infection [Unknown]
  - Decreased appetite [Unknown]
  - Cellulitis [Recovered/Resolved]
  - Cellulitis [Recovered/Resolved]
  - Immunosuppression [Unknown]
  - Cellulitis [Recovered/Resolved]
  - Cellulitis [Recovered/Resolved]
  - Stress [Unknown]
  - Weight decreased [Unknown]
  - Anxiety [Unknown]
  - Skin disorder [Unknown]
  - Surgical failure [Unknown]
  - Ulcer [Unknown]
  - Spigelian hernia [Unknown]
  - Large intestine polyp [Unknown]
  - Joint dislocation [Unknown]
  - Spinal claudication [Unknown]
  - Blood triglycerides increased [Unknown]
  - Umbilical hernia [Unknown]
  - Synovial cyst [Unknown]
  - Skin bacterial infection [Unknown]
  - Erythromelalgia [Unknown]
  - Hiatus hernia [Unknown]
  - Pulmonary mass [Unknown]
  - Lung opacity [Unknown]
  - Dysphagia [Unknown]
  - Sinus disorder [Unknown]
  - Osteoporotic fracture [Unknown]

NARRATIVE: CASE EVENT DATE: 20200118
